FAERS Safety Report 5514605-8 (Version None)
Quarter: 2007Q4

REPORT INFORMATION
  Report Type: 
  Country: None (occurrence: None)
  Receive Date: 20071113
  Receipt Date: 20071105
  Transmission Date: 20080405
  Serious: Yes (Hospitalization)
  Sender: FDA-Public Use
  Company Number: BE-ELI_LILLY_AND_COMPANY-BE200709003183

PATIENT
  Sex: Female
  Weight: 50 kg

DRUGS (4)
  1. FORTEO [Suspect]
     Indication: OSTEOPOROSIS
     Dosage: 20 UG, DAILY (1/D)
     Route: 058
     Dates: start: 20060803
  2. PANTOPRAZOLE SODIUM [Concomitant]
     Indication: GASTRITIS EROSIVE
     Dosage: 20 MG, DAILY (1/D)
     Route: 048
  3. BISOPROLOL FUMARATE [Concomitant]
     Indication: HYPERTENSION
     Dosage: 5 MG, DAILY (1/D)
     Route: 048
  4. LORMETAZEPAM [Concomitant]
     Indication: NERVOUSNESS
     Dosage: 1 MG, DAILY (1/D)
     Route: 048

REACTIONS (2)
  - MALAISE [None]
  - NASOPHARYNGITIS [None]
